FAERS Safety Report 10157293 (Version 2)
Quarter: 2014Q2

REPORT INFORMATION
  Report Type: Spontaneous
  Country: US (occurrence: US)
  Receive Date: 20140507
  Receipt Date: 20140522
  Transmission Date: 20141212
  Serious: Yes (Hospitalization)
  Sender: FDA-Public Use
  Company Number: US-LUNDBECK-DKLU1099764

PATIENT
  Age: 32 Year
  Sex: Female

DRUGS (10)
  1. SABRIL     (TABLET) [Suspect]
     Indication: COMPLEX PARTIAL SEIZURES
     Dates: start: 20140415
  2. SABRIL     (TABLET) [Suspect]
  3. SABRIL     (TABLET) [Suspect]
  4. SABRIL     (TABLET) [Suspect]
  5. SABRIL     (TABLET) [Suspect]
  6. ONFI [Suspect]
     Indication: PRODUCT USED FOR UNKNOWN INDICATION
  7. LEXAPRO FILM-COATED TABLETS [Concomitant]
     Indication: PRODUCT USED FOR UNKNOWN INDICATION
  8. VIMPAT [Concomitant]
     Indication: PRODUCT USED FOR UNKNOWN INDICATION
  9. KEPPRA [Concomitant]
     Indication: PRODUCT USED FOR UNKNOWN INDICATION
  10. DILANTIN [Concomitant]
     Indication: PRODUCT USED FOR UNKNOWN INDICATION

REACTIONS (2)
  - Convulsion [Recovering/Resolving]
  - Drug dose omission [Recovered/Resolved]
